FAERS Safety Report 20855142 (Version 1)
Quarter: 2022Q2

REPORT INFORMATION
  Report Type: Spontaneous
  Country: US (occurrence: None)
  Receive Date: 20220519
  Receipt Date: 20220519
  Transmission Date: 20220720
  Serious: No
  Sender: FDA-Public Use
  Company Number: None

PATIENT
  Age: 65 Year
  Sex: Female
  Weight: 65.25 kg

DRUGS (6)
  1. ULTRA STRENGTH ANTACID [Suspect]
     Active Substance: CALCIUM CARBONATE
     Indication: Mineral supplementation
     Route: 048
  2. ATORVASTATIN [Concomitant]
     Active Substance: ATORVASTATIN
  3. BALSALAZIDE [Concomitant]
     Active Substance: BALSALAZIDE
  4. VITAMIN B12 [Concomitant]
     Active Substance: CYANOCOBALAMIN
  5. VITAMIN D [Concomitant]
     Active Substance: VITAMIN D NOS
  6. Macu health eye vitamins [Concomitant]

REACTIONS (4)
  - Pain [None]
  - Diarrhoea [None]
  - Haematochezia [None]
  - Product substitution issue [None]

NARRATIVE: CASE EVENT DATE: 20220516
